FAERS Safety Report 6437392-8 (Version None)
Quarter: 2009Q4

REPORT INFORMATION
  Report Type: 
  Country: None (occurrence: None)
  Receive Date: 20091112
  Receipt Date: 20091105
  Transmission Date: 20100525
  Serious: Yes (Hospitalization, Other)
  Sender: FDA-Public Use
  Company Number: DE-BAXTER-2009BH016547

PATIENT
  Age: 48 Year
  Sex: Female
  Weight: 81 kg

DRUGS (2)
  1. HEPARIN SODIUM 1,000 UNITS AND SODIUM CHLORIDE 0.9% [Suspect]
     Indication: PULMONARY EMBOLISM
     Dosage: DAILY DOSE: 1100 IU INTERNATIONAL UNIT(S) EVERY HOURS
     Route: 042
     Dates: start: 20090816, end: 20090817
  2. EMBOLEX [Suspect]
     Indication: PULMONARY EMBOLISM
     Dosage: DAILY DOSE: 16000 IU INTERNATIONAL UNIT(S) EVERY DAYS
     Route: 058
     Dates: start: 20090817, end: 20090824

REACTIONS (1)
  - HEPARIN-INDUCED THROMBOCYTOPENIA [None]
